FAERS Safety Report 7542252-5 (Version None)
Quarter: 2011Q2

REPORT INFORMATION
  Report Type: 
  Country: None (occurrence: None)
  Receive Date: 20110524
  Receipt Date: 20100430
  Transmission Date: 20111010
  Serious: No
  Sender: FDA-Public Use
  Company Number: 028061

PATIENT
  Sex: Male

DRUGS (1)
  1. CIMZIA [Suspect]
     Dosage: (400 MG 1X/4 WEEKS, PFS SUBCUTANEOUS)
     Route: 058

REACTIONS (7)
  - VISUAL IMPAIRMENT [None]
  - FLATULENCE [None]
  - ARTHRALGIA [None]
  - ABDOMINAL PAIN [None]
  - AMNESIA [None]
  - SWELLING FACE [None]
  - WEIGHT INCREASED [None]
